FAERS Safety Report 7383298-X (Version None)
Quarter: 2011Q1

REPORT INFORMATION
  Report Type: 
  Country: None (occurrence: None)
  Receive Date: 20110330
  Receipt Date: 20110316
  Transmission Date: 20110831
  Serious: Yes (Other)
  Sender: FDA-Public Use
  Company Number: PHHY2010BR71328

PATIENT
  Sex: Female

DRUGS (1)
  1. DIOVAN HCT [Suspect]
     Dosage: 80 MG VALS AND 12.5 MG HYDR PER DAY
     Route: 048

REACTIONS (3)
  - PAIN [None]
  - FALL [None]
  - WRIST FRACTURE [None]
